FAERS Safety Report 12162303 (Version 1)
Quarter: 2016Q1

REPORT INFORMATION
  Report Type: Spontaneous
  Country: US (occurrence: None)
  Receive Date: 20160307
  Receipt Date: 20160307
  Transmission Date: 20160526
  Serious: Yes (Disabling)
  Sender: FDA-Public Use
  Company Number: None

PATIENT
  Age: 24 Year
  Sex: Female
  Weight: 102.06 kg

DRUGS (5)
  1. MIRENA [Concomitant]
     Active Substance: LEVONORGESTREL
  2. ACETAMINOPHEN. [Concomitant]
     Active Substance: ACETAMINOPHEN
  3. IBUPROFEN. [Concomitant]
     Active Substance: IBUPROFEN
  4. NAPROXEN SODIUM. [Concomitant]
     Active Substance: NAPROXEN SODIUM
  5. LUPRON [Suspect]
     Active Substance: LEUPROLIDE ACETATE
     Indication: ENDOMETRIOSIS
     Dosage: INTO THE MUSCLE
     Route: 030
     Dates: start: 20160203, end: 20160304

REACTIONS (7)
  - Tremor [None]
  - Asthenia [None]
  - Suicidal ideation [None]
  - Hypoaesthesia [None]
  - Decreased appetite [None]
  - Discomfort [None]
  - Paraesthesia [None]
